FAERS Safety Report 8101573-8 (Version None)
Quarter: 2012Q1

REPORT INFORMATION
  Report Type: 
  Country: None (occurrence: None)
  Receive Date: 20120129
  Receipt Date: 20110927
  Transmission Date: 20120608
  Serious: Yes (Other)
  Sender: FDA-Public Use
  Company Number: US-ABBOTT-11P-163-0858565-00

PATIENT
  Age: 41 Year
  Sex: Female

DRUGS (3)
  1. XANAX [Concomitant]
     Indication: ANXIETY
     Route: 048
  2. HUMIRA [Suspect]
     Indication: RHEUMATOID ARTHRITIS
     Dates: start: 20031001
  3. IBUPROFEN [Concomitant]
     Indication: PAIN
     Route: 048

REACTIONS (2)
  - OESOPHAGEAL SPASM [None]
  - HYSTERECTOMY [None]
